FAERS Safety Report 11661464 (Version 1)
Quarter: 2015Q4

REPORT INFORMATION
  Report Type: Report from Study
  Country: KR (occurrence: KR)
  Receive Date: 20151026
  Receipt Date: 20151026
  Transmission Date: 20160304
  Serious: Yes (Hospitalization)
  Sender: FDA-Public Use
  Company Number: KR-OTSUKA-2015_012866

PATIENT

DRUGS (2)
  1. BLINDED CILOSTAZOL [Suspect]
     Active Substance: CILOSTAZOL
     Indication: CEREBRAL SMALL VESSEL ISCHAEMIC DISEASE
     Dosage: UNK UNK, QD
     Route: 048
     Dates: start: 20150105
  2. BLINDED *ASPIRIN [Suspect]
     Active Substance: ASPIRIN
     Indication: CEREBRAL SMALL VESSEL ISCHAEMIC DISEASE
     Dosage: UNK UNK, QD
     Route: 048
     Dates: start: 20150105

REACTIONS (1)
  - Procedural complication [Recovered/Resolved]

NARRATIVE: CASE EVENT DATE: 20150923
